FAERS Safety Report 14135659 (Version 1)
Quarter: 2017Q4

REPORT INFORMATION
  Report Type: Spontaneous
  Country: US (occurrence: US)
  Receive Date: 20171027
  Receipt Date: 20171027
  Transmission Date: 20180321
  Serious: Yes (Other)
  Sender: FDA-Public Use
  Company Number: None

PATIENT
  Age: 23 Year
  Sex: Female
  Weight: 69.3 kg

DRUGS (4)
  1. BUPRORIONXL [Suspect]
     Active Substance: BUPROPION HYDROCHLORIDE
     Indication: GENERALISED ANXIETY DISORDER
     Route: 048
     Dates: start: 20150501, end: 20150923
  2. BUPROPRIONXL [Suspect]
     Active Substance: BUPROPION HYDROCHLORIDE
     Indication: GENERALISED ANXIETY DISORDER
     Route: 048
     Dates: start: 20150501, end: 20150923
  3. BUPRORIONXL [Suspect]
     Active Substance: BUPROPION HYDROCHLORIDE
     Indication: MAJOR DEPRESSION
     Route: 048
     Dates: start: 20150501, end: 20150923
  4. BUPROPRIONXL [Suspect]
     Active Substance: BUPROPION HYDROCHLORIDE
     Indication: MAJOR DEPRESSION
     Route: 048
     Dates: start: 20150501, end: 20150923

REACTIONS (7)
  - Anxiety [None]
  - Apathy [None]
  - Poor quality sleep [None]
  - Panic attack [None]
  - Depression [None]
  - Social problem [None]
  - Disturbance in attention [None]

NARRATIVE: CASE EVENT DATE: 20171011
